FAERS Safety Report 7531433-2 (Version None)
Quarter: 2011Q2

REPORT INFORMATION
  Report Type: 
  Country: None (occurrence: None)
  Receive Date: 20110531
  Receipt Date: 20110513
  Transmission Date: 20111010
  Serious: Yes (Other)
  Sender: FDA-Public Use
  Company Number: 1000015683

PATIENT
  Age: 30 Year
  Sex: Female
  Weight: 47.9 kg

DRUGS (2)
  1. ESCITALOPRAM [Suspect]
     Indication: GENERALISED ANXIETY DISORDER
     Dosage: 10 MG (10 MG, 1 IN 1 D), ORAL
     Route: 048
  2. CORTISON (CORTISONE ACETATE) (CORTISONE ACETATE) [Concomitant]

REACTIONS (4)
  - PREGNANCY [None]
  - COLITIS ULCERATIVE [None]
  - CAESAREAN SECTION [None]
  - DRUG EXPOSURE DURING PREGNANCY [None]
